FAERS Safety Report 7473208-9 (Version None)
Quarter: 2011Q2

REPORT INFORMATION
  Report Type: 
  Country: None (occurrence: None)
  Receive Date: 20110511
  Receipt Date: 20110504
  Transmission Date: 20111010
  Serious: Yes (Other)
  Sender: FDA-Public Use
  Company Number: A0926702A

PATIENT
  Sex: Female

DRUGS (1)
  1. TYKERB [Suspect]
     Dosage: 250MG UNKNOWN

REACTIONS (8)
  - GENERALISED OEDEMA [None]
  - VOMITING [None]
  - ERYTHEMA [None]
  - SKIN DISCOLOURATION [None]
  - SKIN EXFOLIATION [None]
  - DIARRHOEA [None]
  - HYPOKALAEMIA [None]
  - DECREASED APPETITE [None]
